FAERS Safety Report 5802527-4 (Version None)
Quarter: 2008Q2

REPORT INFORMATION
  Report Type: 
  Country: None (occurrence: None)
  Receive Date: 20080627
  Receipt Date: 20080502
  Transmission Date: 20081010
  Serious: Yes (Hospitalization)
  Sender: FDA-Public Use
  Company Number: TPA2008A00639

PATIENT
  Age: 70 Year
  Sex: Male

DRUGS (1)
  1. ACTOPLUS MET [Suspect]
     Indication: DRUG USE FOR UNKNOWN INDICATION
     Dosage: PER ORAL
     Route: 048

REACTIONS (1)
  - JAUNDICE [None]
